FAERS Safety Report 15697397 (Version 1)
Quarter: 2018Q4

REPORT INFORMATION
  Report Type: Spontaneous
  Country: US (occurrence: US)
  Receive Date: 20181207
  Receipt Date: 20181207
  Transmission Date: 20190205
  Serious: Yes (Other)
  Sender: FDA-Public Use
  Company Number: US-STRIDES ARCOLAB LIMITED-2018SP010267

PATIENT
  Age: 73 Year
  Sex: Female

DRUGS (3)
  1. HYDRALAZINE HCL [Suspect]
     Active Substance: HYDRALAZINE HYDROCHLORIDE
     Indication: HYPERTENSION
     Dosage: 50 MG, TID
     Route: 065
  2. LEVOTHYROXINE. [Concomitant]
     Active Substance: LEVOTHYROXINE
     Indication: PRODUCT USED FOR UNKNOWN INDICATION
     Dosage: UNK
     Route: 065
  3. CARVEDILOL. [Concomitant]
     Active Substance: CARVEDILOL
     Indication: PRODUCT USED FOR UNKNOWN INDICATION
     Dosage: UNK
     Route: 065

REACTIONS (10)
  - Decreased appetite [Unknown]
  - Rash [Unknown]
  - Arthralgia [Unknown]
  - Fatigue [Unknown]
  - Glomerulonephritis [Unknown]
  - Pyrexia [Unknown]
  - Dyspnoea [Unknown]
  - Vasculitis [Unknown]
  - Weight decreased [Unknown]
  - Chest pain [Unknown]
